FAERS Safety Report 12226225 (Version 1)
Quarter: 2016Q1

REPORT INFORMATION
  Report Type: Spontaneous
  Country: US (occurrence: None)
  Receive Date: 20160331
  Receipt Date: 20160331
  Transmission Date: 20160526
  Serious: Yes (Other)
  Sender: FDA-Public Use
  Company Number: US-JNJFOC-20160315179

PATIENT
  Sex: Female

DRUGS (1)
  1. LISTERINE POCKETPAK [Suspect]
     Active Substance: EUCALYPTOL\MENTHOL\METHYL SALICYLATE\THYMOL
     Indication: DENTAL DISORDER PROPHYLAXIS
     Dosage: 1 DOSE(S), 1 IN , ORAL
     Route: 048

REACTIONS (4)
  - Swollen tongue [None]
  - Mouth swelling [None]
  - Tongue discolouration [None]
  - Paraesthesia oral [None]
